FAERS Safety Report 8844091 (Version 1)
Quarter: 2012Q4

REPORT INFORMATION
  Report Type: 
  Country: US (occurrence: US)
  Receive Date: 20121016
  Receipt Date: 20121016
  Transmission Date: 20130627
  Serious: No
  Sender: FDA-Public Use
  Company Number: US-BAYER-2012-105013

PATIENT
  Age: 90 Year
  Sex: Female

DRUGS (2)
  1. ALEVE CAPLET/TABLET,MIDOL EXTENDED RELIEF CAPLET [Suspect]
     Dosage: 1 DF, UNK
     Route: 048
     Dates: start: 20120924, end: 20120924
  2. HERBAL SUPPLEMENTS [Concomitant]

REACTIONS (1)
  - Glossodynia [Recovered/Resolved]
